FAERS Safety Report 6356834-X (Version None)
Quarter: 2009Q3

REPORT INFORMATION
  Report Type: 
  Country: None (occurrence: None)
  Receive Date: 20090910
  Receipt Date: 20090910
  Transmission Date: 20100115
  Serious: Yes (Hospitalization)
  Sender: FDA-Public Use
  Company Number: None

PATIENT
  Age: 37 Year
  Sex: Female
  Weight: 56.6996 kg

DRUGS (1)
  1. AMPHETAMINE 20 MG BARR LABRATORIES [Suspect]
     Indication: ATTENTION DEFICIT/HYPERACTIVITY DISORDER
     Dosage: 20 MG 1 A DAY PO
     Route: 048
     Dates: start: 20070101, end: 20090901

REACTIONS (5)
  - ANXIETY [None]
  - CHOLECYSTECTOMY [None]
  - GASTROINTESTINAL DISORDER [None]
  - INSOMNIA [None]
  - PAIN [None]
